FAERS Safety Report 8630734 (Version 2)
Quarter: 2014Q3

REPORT INFORMATION
  Report Type: Spontaneous
  Country: US (occurrence: US)
  Receive Date: 20120622
  Receipt Date: 20140707
  Transmission Date: 20150326
  Serious: Yes (Hospitalization, Other)
  Sender: FDA-Public Use
  Company Number: US-GLAXOSMITHKLINE-A0940969A

PATIENT
  Age: 48 Year
  Sex: Male
  Weight: 102.7 kg

DRUGS (1)
  1. AVANDIA [Suspect]
     Active Substance: ROSIGLITAZONE MALEATE
     Indication: DIABETES MELLITUS
     Dosage: 8MG PER DAY
     Route: 048
     Dates: start: 20000403, end: 20050111

REACTIONS (7)
  - Heart rate irregular [Unknown]
  - Asthenia [Unknown]
  - Fatigue [Unknown]
  - Coronary arterial stent insertion [Unknown]
  - Cardiac disorder [Not Recovered/Not Resolved]
  - Cardiac failure [Unknown]
  - Atrial fibrillation [Unknown]

NARRATIVE: CASE EVENT DATE: 2004
